FAERS Safety Report 11879103 (Version 2)
Quarter: 2016Q1

REPORT INFORMATION
  Report Type: Spontaneous
  Country: IN (occurrence: IN)
  Receive Date: 20151230
  Receipt Date: 20160112
  Transmission Date: 20160526
  Serious: Yes (Other)
  Sender: FDA-Public Use
  Company Number: IN-GLAXOSMITHKLINE-IN2015183141

PATIENT

DRUGS (2)
  1. NICOTINE. [Suspect]
     Active Substance: NICOTINE
     Dosage: 2 MG, UNK
     Route: 065
  2. NICOTINE. [Suspect]
     Active Substance: NICOTINE
     Indication: THERAPY CESSATION
     Dosage: 4 MG, UNK
     Route: 065

REACTIONS (15)
  - Product use issue [Unknown]
  - Headache [Unknown]
  - Constipation [Unknown]
  - Gastrointestinal disorder [Unknown]
  - Withdrawal syndrome [Unknown]
  - Dependence [Unknown]
  - Vertigo [Unknown]
  - Toxicity to various agents [Unknown]
  - Drug ineffective for unapproved indication [Unknown]
  - Product physical issue [Unknown]
  - Hiccups [Unknown]
  - Product formulation issue [Unknown]
  - Off label use [Unknown]
  - Nausea [Unknown]
  - Vomiting [Unknown]
